FAERS Safety Report 6902468-5 (Version None)
Quarter: 2010Q3

REPORT INFORMATION
  Report Type: 
  Country: None (occurrence: None)
  Receive Date: 20100803
  Receipt Date: 20100726
  Transmission Date: 20110219
  Serious: Yes (Other)
  Sender: FDA-Public Use
  Company Number: US-AMGEN-QUU427166

PATIENT
  Sex: Female

DRUGS (1)
  1. ENBREL [Suspect]
     Indication: RHEUMATOID ARTHRITIS
     Route: 058

REACTIONS (5)
  - BONE NEOPLASM [None]
  - HYPOAESTHESIA [None]
  - INJECTION SITE PAIN [None]
  - INTERVERTEBRAL DISC DEGENERATION [None]
  - PAIN IN EXTREMITY [None]
